FAERS Safety Report 9293160 (Version 3)
Quarter: 2013Q4

REPORT INFORMATION
  Report Type: Spontaneous
  Country: US (occurrence: None)
  Receive Date: 20130514
  Receipt Date: 20131114
  Transmission Date: 20140711
  Serious: Yes (Disabling, Other)
  Sender: FDA-Public Use
  Company Number: 1305-596

PATIENT
  Age: 80 Year
  Sex: Female

DRUGS (1)
  1. EYLEA (AFLIBERCEPT) (INJECTION) (AFLIBERCEPT) [Suspect]
     Indication: AGE-RELATED MACULAR DEGENERATION
     Dosage: 2 MG, Q 4-6 WEEKS, INTRAVITREAL
     Dates: start: 20121012, end: 20130426

REACTIONS (7)
  - Blindness [None]
  - Eye inflammation [None]
  - Macular oedema [None]
  - Non-infectious endophthalmitis [None]
  - Vitreous haemorrhage [None]
  - Blindness transient [None]
  - Eye pain [None]
